FAERS Safety Report 24445110 (Version 1)
Quarter: 2024Q4

REPORT INFORMATION
  Report Type: Report from Study
  Country: US (occurrence: US)
  Receive Date: 20241016
  Receipt Date: 20241016
  Transmission Date: 20250115
  Serious: Yes (Hospitalization)
  Sender: ABBVIE
  Company Number: US-ABBVIE-5751103

PATIENT
  Sex: Female

DRUGS (4)
  1. DUOPA [Suspect]
     Active Substance: CARBIDOPA\LEVODOPA
     Indication: Orthostatic hypotension
     Dosage: STRENGTH: 4.63-20 MG?DOSE AND FREQUENCY ADMINISTER CONTENTS OF 1 CASSETTE VIA PEG-J FOR UP TO 16 ...
     Route: 050
     Dates: start: 202206
  2. DUOPA [Suspect]
     Active Substance: CARBIDOPA\LEVODOPA
     Indication: Parkinson^s disease
  3. DUOPA [Suspect]
     Active Substance: CARBIDOPA\LEVODOPA
     Indication: Dyskinesia
  4. DUOPA [Suspect]
     Active Substance: CARBIDOPA\LEVODOPA
     Indication: On and off phenomenon

REACTIONS (3)
  - Blood pressure fluctuation [Unknown]
  - Device issue [Unknown]
  - Product use in unapproved indication [Unknown]
